FAERS Safety Report 6735665-2 (Version None)
Quarter: 2010Q2

REPORT INFORMATION
  Report Type: 
  Country: None (occurrence: None)
  Receive Date: 20100521
  Receipt Date: 20100513
  Transmission Date: 20101027
  Serious: Yes (Other)
  Sender: FDA-Public Use
  Company Number: PHHY2010GB03510

PATIENT
  Sex: Female

DRUGS (6)
  1. CLOZARIL [Suspect]
     Dosage: 300MG/DAY
     Route: 048
     Dates: start: 20090914
  2. HYOSCINE HBR HYT [Concomitant]
     Indication: SALIVARY HYPERSECRETION
     Dosage: 600UG/DAY
     Route: 048
     Dates: start: 20091221
  3. ORLISTAT [Concomitant]
     Dosage: 360MG/DAY
     Route: 048
     Dates: start: 20100412
  4. DIAZEPAM [Concomitant]
     Indication: AGITATION
     Dosage: 20MG/PRN
     Route: 048
     Dates: start: 20100407
  5. PARACETAMOL [Concomitant]
     Indication: PAIN
     Dosage: 4G/PRN
     Route: 048
     Dates: start: 20080415
  6. IBUPROFEN [Concomitant]
     Indication: PAIN
     Dosage: 1200MG/PRN
     Route: 048

REACTIONS (4)
  - ASTHMA [None]
  - CHEST DISCOMFORT [None]
  - DYSPNOEA [None]
  - PEAK EXPIRATORY FLOW RATE DECREASED [None]
